FAERS Safety Report 10530156 (Version 1)
Quarter: 2014Q4

REPORT INFORMATION
  Report Type: Spontaneous
  Country: US (occurrence: None)
  Receive Date: 20141020
  Receipt Date: 20141020
  Transmission Date: 20150528
  Serious: Yes (Life-Threatening, Hospitalization)
  Sender: FDA-Public Use
  Company Number: None

PATIENT
  Age: 52 Year
  Sex: Female

DRUGS (4)
  1. ISOSULFAN BLUE. [Suspect]
     Active Substance: ISOSULFAN BLUE
     Indication: DIAGNOSTIC PROCEDURE
     Route: 030
     Dates: start: 20141009, end: 20141009
  2. ANCEF [Suspect]
     Active Substance: CEFAZOLIN SODIUM
     Indication: ANTIBIOTIC THERAPY
     Route: 042
     Dates: start: 20141009, end: 20141009
  3. ASPIRIN. [Concomitant]
     Active Substance: ASPIRIN
  4. ANCEF [Suspect]
     Active Substance: CEFAZOLIN SODIUM
     Indication: PREOPERATIVE CARE
     Route: 042
     Dates: start: 20141009, end: 20141009

REACTIONS (5)
  - Oxygen saturation decreased [None]
  - Pulseless electrical activity [None]
  - Hypotension [None]
  - Cardiac arrest [None]
  - Pulse abnormal [None]

NARRATIVE: CASE EVENT DATE: 20141009
